FAERS Safety Report 9036211 (Version 1)
Quarter: 2013Q1

REPORT INFORMATION
  Report Type: Spontaneous
  Country: SG (occurrence: None)
  Receive Date: 20130114
  Receipt Date: 20130114
  Transmission Date: 20140127
  Serious: Yes (Hospitalization, Other)
  Sender: FDA-Public Use
  Company Number: 2013P1000003

PATIENT
  Age: 64 Year
  Sex: Male

DRUGS (2)
  1. AMIODARONE [Suspect]
     Indication: ATRIAL FIBRILLATION
     Route: 042
  2. FUROSEMIDE [Concomitant]

REACTIONS (7)
  - Transaminases increased [None]
  - Coagulopathy [None]
  - Renal failure acute [None]
  - International normalised ratio increased [None]
  - Thrombocytopenia [None]
  - Prothrombin time prolonged [None]
  - Ischaemic stroke [None]
